FAERS Safety Report 4963248-3 (Version None)
Quarter: 2006Q2

REPORT INFORMATION
  Report Type: 
  Country: None (occurrence: None)
  Receive Date: 20060405
  Receipt Date: 20050908
  Transmission Date: 20061013
  Serious: Yes (Hospitalization)
  Sender: FDA-Public Use
  Company Number: US-MERCK-0509USA01065

PATIENT
  Age: 70 Year
  Sex: Female
  Weight: 82 kg

DRUGS (9)
  1. VIOXX [Suspect]
     Indication: OSTEOARTHRITIS
     Route: 048
     Dates: start: 19990801, end: 20020301
  2. DIOVAN [Concomitant]
     Route: 048
  3. ASPIRIN [Concomitant]
     Route: 048
  4. PREMARIN [Concomitant]
     Route: 048
  5. HYDROCHLOROTHIAZIDE [Concomitant]
     Route: 065
  6. RHINOCORT [Concomitant]
     Route: 065
  7. RANITIDINE [Concomitant]
     Route: 065
  8. HYZAAR [Concomitant]
     Route: 065
  9. COZAAR [Concomitant]
     Route: 065

REACTIONS (23)
  - ABDOMINAL PAIN [None]
  - ARTERIOSPASM CORONARY [None]
  - CEREBRAL ISCHAEMIA [None]
  - CHEST PAIN [None]
  - CORONARY ARTERY DISEASE [None]
  - CORONARY ARTERY THROMBOSIS [None]
  - DEAFNESS [None]
  - DEAFNESS UNILATERAL [None]
  - DIARRHOEA [None]
  - DIZZINESS [None]
  - DYSPNOEA EXERTIONAL [None]
  - ELECTROCARDIOGRAM P WAVE ABNORMAL [None]
  - ELECTROCARDIOGRAM ST SEGMENT DEPRESSION [None]
  - ELECTROCARDIOGRAM T WAVE INVERSION [None]
  - ELECTROCARDIOGRAM T WAVE PEAKED [None]
  - HIATUS HERNIA [None]
  - HYPERHIDROSIS [None]
  - MITRAL VALVE CALCIFICATION [None]
  - MITRAL VALVE INCOMPETENCE [None]
  - MYOCARDIAL INFARCTION [None]
  - NAUSEA [None]
  - SKIN LESION [None]
  - TINNITUS [None]
